FAERS Safety Report 8161112 (Version 3)
Quarter: 2015Q1

REPORT INFORMATION
  Report Type: Spontaneous
  Country: DE (occurrence: DE)
  Receive Date: 20110929
  Receipt Date: 20150331
  Transmission Date: 20150721
  Serious: Yes (Other)
  Sender: FDA-Public Use
  Company Number: DE-UCBSA-041941

PATIENT

DRUGS (2)
  1. VIMPAT [Suspect]
     Active Substance: LACOSAMIDE
  2. KEPPRA [Suspect]
     Active Substance: LEVETIRACETAM

REACTIONS (6)
  - Aggression [Unknown]
  - Drug ineffective [Unknown]
  - Seizure [Unknown]
  - Fatigue [Unknown]
  - Generalised tonic-clonic seizure [Unknown]
  - Status epilepticus [Unknown]
